FAERS Safety Report 15185935 (Version 1)
Quarter: 2018Q3

REPORT INFORMATION
  Report Type: Report from Study
  Country: US (occurrence: US)
  Receive Date: 20180723
  Receipt Date: 20180723
  Transmission Date: 20181010
  Serious: No
  Sender: FDA-Public Use
  Company Number: US-EXELIXIS-CABO-18014230

PATIENT
  Age: 68 Year
  Sex: Female

DRUGS (1)
  1. CABOMETYX [Suspect]
     Active Substance: CABOZANTINIB S-MALATE
     Indication: OVARIAN CANCER
     Dosage: 40 MG, MONDAY?FRIDAY AND OFF ON WEEKENDS
     Dates: start: 20180430

REACTIONS (11)
  - Diarrhoea [Recovering/Resolving]
  - Tongue discomfort [Unknown]
  - Fatigue [Recovered/Resolved]
  - Dizziness [Unknown]
  - Asthenia [Unknown]
  - Acne [Unknown]
  - Stomatitis [Recovered/Resolved]
  - Hyperhidrosis [Unknown]
  - Respiratory tract infection [Unknown]
  - Dysgeusia [Unknown]
  - Off label use [Unknown]

NARRATIVE: CASE EVENT DATE: 2018
